FAERS Safety Report 9620841 (Version 1)
Quarter: 2013Q4

REPORT INFORMATION
  Report Type: Other
  Country: US (occurrence: US)
  Receive Date: 20131015
  Receipt Date: 20131015
  Transmission Date: 20140711
  Serious: Yes (Hospitalization)
  Sender: FDA-Public Use
  Company Number: US-SHIRE-ALL1-2013-06826

PATIENT
  Age: 66 Year
  Sex: Male

DRUGS (1)
  1. VPRIV [Suspect]
     Indication: GAUCHER^S DISEASE
     Dosage: 4800 IU, 1X/2WKS
     Route: 041
     Dates: start: 20111006

REACTIONS (2)
  - Syncope [Unknown]
  - Dehydration [Unknown]
